FAERS Safety Report 5376686-4 (Version None)
Quarter: 2007Q2

REPORT INFORMATION
  Report Type: 
  Country: None (occurrence: None)
  Receive Date: 20070629
  Receipt Date: 20070615
  Transmission Date: 20071010
  Serious: Yes (Life-Threatening)
  Sender: FDA-Public Use
  Company Number: 200706AGG00652

PATIENT
  Age: 81 Year
  Sex: Male

DRUGS (6)
  1. TIROFIBAN HYDROCHLORIDE (TIROFIBAN HC1) 7.5 ML [Suspect]
     Indication: ACUTE MYOCARDIAL INFARCTION
     Dosage: INTRAVENOUS (NOT OTHERWISE SPECIFIED)
     Route: 042
     Dates: start: 20061126, end: 20061127
  2. OMNIC (TO UNKNOWN) [Concomitant]
  3. CLOPIDOGREL BISULFATE (TO UNKNOWN) [Concomitant]
  4. ASPIRIN /00002701/ (TO UNKNOWN) [Concomitant]
  5. XALATAN /01297301/ (TO UNKNOWN) [Concomitant]
  6. TIMOLOL (TO UNKNOWN) [Concomitant]

REACTIONS (1)
  - VENTRICULAR FIBRILLATION [None]
